FAERS Safety Report 6618733-5 (Version None)
Quarter: 2010Q1

REPORT INFORMATION
  Report Type: 
  Country: None (occurrence: None)
  Receive Date: 20100308
  Receipt Date: 20100223
  Transmission Date: 20100710
  Serious: Yes (Hospitalization, Other)
  Sender: FDA-Public Use
  Company Number: DE-ELI_LILLY_AND_COMPANY-DE201002006196

PATIENT
  Age: 85 Year
  Sex: Female

DRUGS (1)
  1. FORTEO [Suspect]
     Indication: OSTEOPOROSIS
     Dosage: 20 UG, DAILY (1/D)
     Route: 058
     Dates: start: 20090416, end: 20091214

REACTIONS (4)
  - ANAEMIA [None]
  - FATIGUE [None]
  - LOSS OF CONSCIOUSNESS [None]
  - RASH GENERALISED [None]
